FAERS Safety Report 8096302-0 (Version None)
Quarter: 2012Q1

REPORT INFORMATION
  Report Type: 
  Country: None (occurrence: None)
  Receive Date: 20120129
  Receipt Date: 20111230
  Transmission Date: 20120608
  Serious: No
  Sender: FDA-Public Use
  Company Number: US-ABBOTT-12P-163-0888833-00

PATIENT
  Age: 38 Year
  Sex: Male

DRUGS (3)
  1. SIMVASTATIN [Concomitant]
     Indication: BLOOD CHOLESTEROL
  2. LISINOPRIL [Concomitant]
     Indication: BLOOD CHOLESTEROL
  3. HUMIRA [Suspect]
     Indication: PSORIASIS
     Dates: start: 20111102

REACTIONS (1)
  - PSORIASIS [None]
